FAERS Safety Report 19060671 (Version 2)
Quarter: 2021Q2

REPORT INFORMATION
  Report Type: Spontaneous
  Country: KR (occurrence: KR)
  Receive Date: 20210326
  Receipt Date: 20210409
  Transmission Date: 20210717
  Serious: Yes (Other)
  Sender: FDA-Public Use
  Company Number: KR-SUN PHARMACEUTICAL INDUSTRIES LTD-2021RR-287893

PATIENT
  Age: 13 Year
  Sex: Female

DRUGS (3)
  1. RIVOTRIL [Suspect]
     Active Substance: CLONAZEPAM
     Indication: MANIA
     Dosage: 0.25 MILLIGRAM, DAILY
     Route: 065
  2. RIPERIDON TAB 0.5MG [Suspect]
     Active Substance: RISPERIDONE
     Indication: MANIA
     Dosage: 0.5 MILLIGRAM, DAILY
     Route: 065
  3. DEPAKOTE ER [Suspect]
     Active Substance: DIVALPROEX SODIUM
     Indication: MANIA
     Dosage: 500 MILLIGRAM, DAILY
     Route: 065

REACTIONS (5)
  - Distractibility [Recovering/Resolving]
  - Suicidal ideation [Recovering/Resolving]
  - Depressed mood [Recovering/Resolving]
  - Therapeutic product effect incomplete [Unknown]
  - Rash [Recovering/Resolving]
